FAERS Safety Report 20447539 (Version 5)
Quarter: 2025Q1

REPORT INFORMATION
  Report Type: Report from Study
  Country: US (occurrence: US)
  Receive Date: 20220209
  Receipt Date: 20250115
  Transmission Date: 20250409
  Serious: No
  Sender: HRA PHARMA
  Company Number: US-ORG100014127-2021001577

PATIENT
  Age: 44 Year
  Sex: Female

DRUGS (7)
  1. LYSODREN [Suspect]
     Active Substance: MITOTANE
     Indication: Adrenal gland cancer
     Route: 048
     Dates: start: 20190227
  2. LYSODREN [Suspect]
     Active Substance: MITOTANE
     Indication: Adrenal gland cancer
     Dosage: 05 TABLETS PER DAY
     Route: 048
     Dates: start: 20201119
  3. LYSODREN [Suspect]
     Active Substance: MITOTANE
     Indication: Adrenal gland cancer
     Dosage: 05 TABLETS PER DAY
     Route: 048
  4. LYSODREN [Suspect]
     Active Substance: MITOTANE
     Indication: Adrenal gland cancer
     Dosage: 06 TABLETS PER DAY
     Route: 048
  5. LYSODREN [Suspect]
     Active Substance: MITOTANE
     Indication: Adrenal gland cancer
     Dosage: 03 TABLETS BY MOUTH NIGHTLY
     Route: 048
     Dates: start: 20231127
  6. LYSODREN [Suspect]
     Active Substance: MITOTANE
     Indication: Adrenal gland cancer
     Dosage: 03 TABLETS BY MOUTH NIGHTLY
     Route: 048
  7. PRILOSEC OTC TAB 20MG [Concomitant]
     Indication: Product used for unknown indication

REACTIONS (5)
  - Superior vena cava syndrome [Not Recovered/Not Resolved]
  - Abdominal pain upper [Unknown]
  - Fatigue [Unknown]
  - Nausea [Recovered/Resolved]
  - Diarrhoea [Recovered/Resolved]

NARRATIVE: CASE EVENT DATE: 20190101
